FAERS Safety Report 4467832-5 (Version None)
Quarter: 2004Q4

REPORT INFORMATION
  Report Type: 
  Country: None (occurrence: None)
  Receive Date: 20041001
  Receipt Date: 20040922
  Transmission Date: 20050328
  Serious: Yes (Hospitalization)
  Sender: FDA-Public Use
  Company Number: 2004235163SE

PATIENT
  Age: 83 Year
  Sex: Male

DRUGS (4)
  1. ZYVOXID (LINEZOLID)TABLET [Suspect]
     Indication: STAPHYLOCOCCAL INFECTION
     Dosage: 600 MG, BID, ORAL
     Route: 048
     Dates: start: 20020930, end: 20021125
  2. RIFAMPICIN [Suspect]
     Indication: STAPHYLOCOCCAL INFECTION
     Dosage: 600 MG, BID, ORAL
     Route: 048
     Dates: start: 20020930, end: 20021125
  3. ACETAMINOPHEN [Concomitant]
  4. ASPIRIN [Concomitant]

REACTIONS (2)
  - ARTHRITIS [None]
  - CHONDROCALCINOSIS PYROPHOSPHATE [None]
